FAERS Safety Report 5490962-6 (Version None)
Quarter: 2007Q4

REPORT INFORMATION
  Report Type: 
  Country: None (occurrence: None)
  Receive Date: 20071019
  Receipt Date: 20071008
  Transmission Date: 20080405
  Serious: Yes (Other)
  Sender: FDA-Public Use
  Company Number: HK-PFIZER INC-2007085234

PATIENT
  Age: 54 Year
  Sex: Male

DRUGS (4)
  1. ZIPRASIDONE (CAPS) [Suspect]
     Indication: SCHIZOPHRENIA, CATATONIC TYPE
     Dosage: DAILY DOSE:60MG
     Route: 048
     Dates: start: 20050101, end: 20050101
  2. ZIPRASIDONE (IM) [Suspect]
     Indication: SCHIZOPHRENIA, CATATONIC TYPE
     Dosage: DAILY DOSE:10MG-FREQ:ONCE
     Route: 030
     Dates: start: 20050101, end: 20050101
  3. CITALOPRAM HYDROBROMIDE [Suspect]
     Indication: SCHIZOPHRENIA, CATATONIC TYPE
     Dosage: DAILY DOSE:60MG
  4. OLANZAPINE [Concomitant]
     Indication: SCHIZOPHRENIA, CATATONIC TYPE
     Route: 048
     Dates: start: 20040101, end: 20050101

REACTIONS (1)
  - URINARY RETENTION [None]
